FAERS Safety Report 7129269-X (Version None)
Quarter: 2010Q4

REPORT INFORMATION
  Report Type: 
  Country: None (occurrence: None)
  Receive Date: 20101130
  Receipt Date: 20101018
  Transmission Date: 20110411
  Serious: Yes (Other)
  Sender: FDA-Public Use
  Company Number: PHHY2010US69834

PATIENT
  Sex: Female

DRUGS (2)
  1. GENTEAL PF  (NVO) [Suspect]
  2. PLAVIX [Concomitant]

REACTIONS (3)
  - CARDIAC OPERATION [None]
  - CONJUNCTIVAL HAEMORRHAGE [None]
  - EYE HAEMORRHAGE [None]
